FAERS Safety Report 20551262 (Version 1)
Quarter: 2022Q1

REPORT INFORMATION
  Report Type: Spontaneous
  Country: AU (occurrence: AU)
  Receive Date: 20220304
  Receipt Date: 20220304
  Transmission Date: 20220423
  Serious: Yes (Hospitalization, Other)
  Sender: FDA-Public Use
  Company Number: AU-BoehringerIngelheim-2022-BI-155990

PATIENT
  Age: 49 Year
  Sex: Male

DRUGS (7)
  1. MOBIC [Suspect]
     Active Substance: MELOXICAM
     Indication: Product used for unknown indication
  2. TECFIDERA [Suspect]
     Active Substance: DIMETHYL FUMARATE
     Indication: Relapsing-remitting multiple sclerosis
     Route: 048
     Dates: start: 20191206, end: 20191219
  3. TECFIDERA [Suspect]
     Active Substance: DIMETHYL FUMARATE
     Route: 048
     Dates: start: 20191220
  4. TECFIDERA [Suspect]
     Active Substance: DIMETHYL FUMARATE
     Route: 048
     Dates: start: 201912, end: 20200407
  5. TECFIDERA [Suspect]
     Active Substance: DIMETHYL FUMARATE
     Route: 048
     Dates: start: 202005, end: 20210410
  6. PROLIA [Concomitant]
     Active Substance: DENOSUMAB
     Indication: Osteoporosis
  7. COVID-19 VACCINE [Concomitant]
     Indication: Immunisation

REACTIONS (14)
  - Back pain [Unknown]
  - Multiple sclerosis [Not Recovered/Not Resolved]
  - Ulcer haemorrhage [Unknown]
  - Fall [Recovered/Resolved with Sequelae]
  - Head injury [Recovered/Resolved]
  - Loss of consciousness [Recovered/Resolved]
  - Prescribed underdose [Unknown]
  - Nausea [Recovered/Resolved]
  - Vomiting [Unknown]
  - Chromaturia [Recovered/Resolved]
  - Intentional dose omission [Recovered/Resolved]
  - Arthralgia [Not Recovered/Not Resolved]
  - Eating disorder [Unknown]
  - Liver function test increased [Unknown]

NARRATIVE: CASE EVENT DATE: 20191202
